FAERS Safety Report 8614774-7 (Version None)
Quarter: 2012Q3

REPORT INFORMATION
  Report Type: 
  Country: None (occurrence: None)
  Receive Date: 20120823
  Receipt Date: 20120813
  Transmission Date: 20120928
  Serious: Yes (Hospitalization, Other)
  Sender: FDA-Public Use
  Company Number: ES-MUTUAL PHARMACEUTICAL COMPANY, INC.-LVTM20120005

PATIENT
  Age: 88 Year
  Sex: Female

DRUGS (3)
  1. ACETYLSALICYLIC ACID SRT [Concomitant]
     Indication: PRODUCT USED FOR UNKNOWN INDICATION
     Route: 065
  2. HYDROCHLOROTHIAZIDE (HIDROSALURETIL R) [Concomitant]
     Indication: PRODUCT USED FOR UNKNOWN INDICATION
     Route: 065
  3. LEVETIRACETAM [Suspect]
     Indication: CONVULSION
     Route: 042

REACTIONS (1)
  - LONG QT SYNDROME [None]
